FAERS Safety Report 6235804-6 (Version None)
Quarter: 2009Q2

REPORT INFORMATION
  Report Type: 
  Country: None (occurrence: None)
  Receive Date: 20090617
  Receipt Date: 20090617
  Transmission Date: 20091009
  Serious: Yes (Other)
  Sender: FDA-Public Use
  Company Number: None

PATIENT
  Sex: Female
  Weight: 73.0291 kg

DRUGS (2)
  1. ZICAM GEL SWABS COLD REMEDY ZICAM LLC, MATRIXX IND INC [Suspect]
     Indication: NASOPHARYNGITIS
     Dosage: 1 SWAB 2 OR 3 PER DAY
     Dates: start: 20080422, end: 20080427
  2. ZICAM GEL SWABS COLD REMEDY ZICAM LLC, MATRIXX IND INC [Suspect]
     Indication: SINUS DISORDER
     Dosage: 1 SWAB 2 OR 3 PER DAY
     Dates: start: 20080422, end: 20080427

REACTIONS (1)
  - NO ADVERSE EVENT [None]
